FAERS Safety Report 19164292 (Version 1)
Quarter: 2021Q2

REPORT INFORMATION
  Report Type: Other
  Country: US (occurrence: US)
  Receive Date: 20210421
  Receipt Date: 20210421
  Transmission Date: 20210717
  Serious: No
  Sender: FDA-Public Use
  Company Number: US-ALKERMES INC.-ALK-2020-005308

PATIENT
  Age: 23 Year
  Sex: Male
  Weight: 96.75 kg

DRUGS (1)
  1. VIVITROL [Suspect]
     Active Substance: NALTREXONE
     Indication: DRUG USE DISORDER
     Dosage: 380 MILLIGRAM, QMO
     Route: 030
     Dates: start: 20200619, end: 20200716

REACTIONS (3)
  - Agitation [Unknown]
  - Irritability [Unknown]
  - Affective disorder [Unknown]

NARRATIVE: CASE EVENT DATE: 20200717
